FAERS Safety Report 4263843-3 (Version None)
Quarter: 2004Q1

REPORT INFORMATION
  Report Type: 
  Country: None (occurrence: None)
  Receive Date: 20040106
  Receipt Date: 20031118
  Transmission Date: 20041129
  Serious: Yes (Death)
  Sender: FDA-Public Use
  Company Number: PHFR2003GB04525

PATIENT
  Age: 44 Year
  Sex: Male

DRUGS (1)
  1. CLOZARIL [Suspect]
     Indication: SCHIZOPHRENIA
     Route: 048
     Dates: start: 19930219

REACTIONS (3)
  - CHEST PAIN [None]
  - MYOCARDIAL INFARCTION [None]
  - WHITE BLOOD CELL COUNT INCREASED [None]
